FAERS Safety Report 12633365 (Version 1)
Quarter: 2016Q3

REPORT INFORMATION
  Report Type: Spontaneous
  Country: US (occurrence: US)
  Receive Date: 20160809
  Receipt Date: 20160809
  Transmission Date: 20161109
  Serious: No
  Sender: FDA-Public Use
  Company Number: US-BEH-2016072187

PATIENT
  Age: 47 Year
  Sex: Female
  Weight: 86.17 kg

DRUGS (35)
  1. CITALOPRAM [Concomitant]
     Active Substance: CITALOPRAM HYDROBROMIDE
  2. ACETAMINOPHEN. [Concomitant]
     Active Substance: ACETAMINOPHEN
  3. LMX                                /00033401/ [Concomitant]
  4. TAMOXIFEN [Concomitant]
     Active Substance: TAMOXIFEN
  5. ONDANSETRON [Concomitant]
     Active Substance: ONDANSETRON
  6. CEFUROXIME. [Concomitant]
     Active Substance: CEFUROXIME
  7. FLUOXETINE [Concomitant]
     Active Substance: FLUOXETINE HYDROCHLORIDE
  8. MULTIVITAMIN                       /00097801/ [Concomitant]
     Active Substance: VITAMINS
  9. DIAZEPAM. [Concomitant]
     Active Substance: DIAZEPAM
  10. ZEMAIRA [Suspect]
     Active Substance: .ALPHA.1-PROTEINASE INHIBITOR HUMAN
     Indication: ALPHA-1 ANTI-TRYPSIN DEFICIENCY
     Dosage: 60 MG, QW
     Route: 042
     Dates: start: 20110906
  11. HEPARIN [Concomitant]
     Active Substance: HEPARIN SODIUM
  12. LORAZEPAM. [Concomitant]
     Active Substance: LORAZEPAM
  13. PROAIR HFA [Concomitant]
     Active Substance: ALBUTEROL SULFATE
  14. PRILOCAINE [Concomitant]
     Active Substance: PRILOCAINE
  15. PROMETHAZINE [Concomitant]
     Active Substance: PROMETHAZINE\PROMETHAZINE HYDROCHLORIDE
  16. SPIRIVA [Concomitant]
     Active Substance: TIOTROPIUM BROMIDE MONOHYDRATE
  17. PREDNISONE. [Concomitant]
     Active Substance: PREDNISONE
  18. AMOXICILLIN. [Concomitant]
     Active Substance: AMOXICILLIN
  19. PRAVASTATIN. [Concomitant]
     Active Substance: PRAVASTATIN
  20. ASPIRIN. [Concomitant]
     Active Substance: ASPIRIN
  21. KETOCONAZOLE. [Concomitant]
     Active Substance: KETOCONAZOLE
  22. DIPHENHYDRAMINE. [Concomitant]
     Active Substance: DIPHENHYDRAMINE
  23. SODIUM CHLORIDE. [Concomitant]
     Active Substance: SODIUM CHLORIDE
  24. PERCOCET                           /00446701/ [Concomitant]
     Active Substance: ACETAMINOPHEN\OXYCODONE HYDROCHLORIDE\OXYCODONE TEREPHTHALATE
  25. IBUPROFEN. [Concomitant]
     Active Substance: IBUPROFEN
  26. ROPINIROLE. [Concomitant]
     Active Substance: ROPINIROLE
  27. TRAMADOL. [Concomitant]
     Active Substance: TRAMADOL
  28. AVELOX [Concomitant]
     Active Substance: MOXIFLOXACIN HYDROCHLORIDE
  29. ALBUTEROL                          /00139501/ [Concomitant]
     Active Substance: ALBUTEROL
  30. OXYGEN. [Concomitant]
     Active Substance: OXYGEN
  31. LIDOCAINE. [Concomitant]
     Active Substance: LIDOCAINE
  32. EPIPEN [Concomitant]
     Active Substance: EPINEPHRINE
  33. MOXIFLOXACIN. [Concomitant]
     Active Substance: MOXIFLOXACIN
  34. DOXYCYCLINE. [Concomitant]
     Active Substance: DOXYCYCLINE
  35. SYMBICORT [Concomitant]
     Active Substance: BUDESONIDE\FORMOTEROL FUMARATE DIHYDRATE

REACTIONS (1)
  - Upper respiratory tract infection [Unknown]

NARRATIVE: CASE EVENT DATE: 20160405
